FAERS Safety Report 26198560 (Version 2)
Quarter: 2025Q4

REPORT INFORMATION
  Report Type: Report from Study
  Country: GB (occurrence: GB)
  Receive Date: 20251224
  Receipt Date: 20251228
  Transmission Date: 20260118
  Serious: Yes (Hospitalization)
  Sender: ABBVIE
  Company Number: GB-ABBVIE-6603253

PATIENT
  Age: 69 Year
  Sex: Male

DRUGS (3)
  1. CARBIDOPA\LEVODOPA [Suspect]
     Active Substance: CARBIDOPA\LEVODOPA
     Indication: Parkinson^s disease
     Dosage: DUODOPA 20MG/5MG, DOSE INCREASED AS WAS USING 6-7 EDS A DAY
     Route: 050
  2. CARBIDOPA\LEVODOPA [Suspect]
     Active Substance: CARBIDOPA\LEVODOPA
     Dosage: DUODOPA 20MG/5MG, NOW USING 5 EDS A DAY
     Route: 050
     Dates: start: 2025
  3. CARBIDOPA\LEVODOPA [Suspect]
     Active Substance: CARBIDOPA\LEVODOPA
     Dosage: DUODOPA 20MG/5MG?DAY MD= 4.2, NIGHT MD= 4.2 DAY CR=4.5 NIGHT CR= 4.0, NIGHT ED= 3.2, DAY ED= 3.2
     Route: 050

REACTIONS (8)
  - Unresponsive to stimuli [Recovered/Resolved]
  - Influenza like illness [Not Recovered/Not Resolved]
  - Device issue [Recovered/Resolved]
  - Incorrect route of product administration [Recovered/Resolved]
  - On and off phenomenon [Recovered/Resolved]
  - Dysphonia [Unknown]
  - Device dislocation [Recovered/Resolved]
  - Device occlusion [Recovered/Resolved]

NARRATIVE: CASE EVENT DATE: 20251218
